FAERS Safety Report 7355600-6 (Version None)
Quarter: 2011Q1

REPORT INFORMATION
  Report Type: 
  Country: None (occurrence: None)
  Receive Date: 20110316
  Receipt Date: 20110314
  Transmission Date: 20110831
  Serious: Yes (Hospitalization)
  Sender: FDA-Public Use
  Company Number: B0705704A

PATIENT
  Sex: Male

DRUGS (8)
  1. ABILIFY [Suspect]
     Dosage: 10MG PER DAY
     Route: 048
     Dates: start: 20100703, end: 20100713
  2. IMOVANE [Concomitant]
     Dosage: 7.5MG PER DAY
     Route: 048
  3. PAROXETINE HCL [Suspect]
     Dosage: 20MG PER DAY
     Route: 048
     Dates: start: 20100701, end: 20100713
  4. TERCIAN [Concomitant]
     Dosage: 100MG PER DAY
     Route: 048
     Dates: end: 20100713
  5. ATHYMIL [Suspect]
     Dosage: 60MG PER DAY
     Route: 048
     Dates: start: 20100701, end: 20100713
  6. SORIATANE [Suspect]
     Dosage: 25MG PER DAY
     Route: 048
     Dates: start: 20100701, end: 20100713
  7. VALIUM [Suspect]
     Dosage: 5MG FOUR TIMES PER DAY
     Route: 048
     Dates: start: 20100701
  8. TEMESTA [Suspect]
     Dosage: 2.5MG PER DAY
     Route: 048
     Dates: start: 20100701

REACTIONS (5)
  - RHABDOMYOLYSIS [None]
  - MOTOR DYSFUNCTION [None]
  - MYALGIA [None]
  - PARAESTHESIA [None]
  - PERIPHERAL SENSORY NEUROPATHY [None]
